FAERS Safety Report 4446510-2 (Version None)
Quarter: 2004Q3

REPORT INFORMATION
  Report Type: 
  Country: None (occurrence: None)
  Receive Date: 20040908
  Receipt Date: 20040826
  Transmission Date: 20050211
  Serious: Yes (Death)
  Sender: FDA-Public Use
  Company Number: F01200402627

PATIENT
  Age: 68 Year
  Sex: Male
  Weight: 45 kg

DRUGS (4)
  1. PACLITAXEL [Suspect]
     Indication: NON-SMALL CELL LUNG CANCER
     Dosage: 225 MG/M2 Q3W - INTRAVENOUS NOS
     Route: 042
     Dates: start: 20040823, end: 20040823
  2. CARBOPLATIN [Suspect]
     Dosage: DOSE CALCULATED TO PRODUCE AN AUC OF 6.0 OVER 30-60MINUTES - INTRAVENOUS NOS
     Route: 042
     Dates: start: 20040823, end: 20040823
  3. ATORVASTATIN CALCIUM [Concomitant]
  4. FAMOTIDINE [Concomitant]

REACTIONS (6)
  - AGONAL RHYTHM [None]
  - ARTERIAL INSUFFICIENCY [None]
  - BLOOD PRESSURE IMMEASURABLE [None]
  - CARDIO-RESPIRATORY ARREST [None]
  - COMA [None]
  - PERIPHERAL VASCULAR DISORDER [None]
